FAERS Safety Report 4512412-6 (Version None)
Quarter: 2004Q4

REPORT INFORMATION
  Report Type: 
  Country: None (occurrence: None)
  Receive Date: 20041124
  Receipt Date: 20041111
  Transmission Date: 20050328
  Serious: Yes (Death)
  Sender: FDA-Public Use
  Company Number: M2004.1703

PATIENT
  Age: 83 Year
  Sex: Female

DRUGS (5)
  1. DICLOFENAC [Suspect]
     Indication: BACK PAIN
     Dosage: 50MG PRN TDS
     Dates: start: 20020111
  2. ATENOLOL [Concomitant]
  3. BENDROFLUAZIDE (BENDROFLUAZIDE) [Concomitant]
  4. FELODIPINE [Concomitant]
  5. CO-DYDRAMOL (DIHYDROCODEINEPARACETAMOL) [Concomitant]

REACTIONS (2)
  - DISSEMINATED INTRAVASCULAR COAGULATION [None]
  - GASTROINTESTINAL HAEMORRHAGE [None]
